FAERS Safety Report 25792802 (Version 1)
Quarter: 2025Q3

REPORT INFORMATION
  Report Type: Report from Study
  Country: GB (occurrence: GB)
  Receive Date: 20250911
  Receipt Date: 20250911
  Transmission Date: 20251020
  Serious: Yes (Other)
  Sender: NOVARTIS
  Company Number: GB-002147023-NVSC2025GB139734

PATIENT
  Sex: Female

DRUGS (3)
  1. COSENTYX [Suspect]
     Active Substance: SECUKINUMAB
     Indication: Ankylosing spondylitis
     Dosage: 300 MG, QW (LOADING DOSE: WEEK 0, 1, 2, 3, 4)
     Route: 058
  2. COSENTYX [Suspect]
     Active Substance: SECUKINUMAB
     Dosage: 300 MG, QMO
     Route: 058
  3. COSENTYX [Suspect]
     Active Substance: SECUKINUMAB
     Route: 065
     Dates: start: 2023

REACTIONS (10)
  - Lower respiratory tract infection [Unknown]
  - Anaphylactic reaction [Unknown]
  - Urinary tract infection [Unknown]
  - Rhinalgia [Unknown]
  - Oral pain [Unknown]
  - Abdominal discomfort [Unknown]
  - Injection related reaction [Unknown]
  - Pruritus [Unknown]
  - Eczema [Unknown]
  - Eyelid irritation [Unknown]
